FAERS Safety Report 8764403 (Version 1)
Quarter: 2012Q4

REPORT INFORMATION
  Report Type: 
  Country: HK (occurrence: HK)
  Receive Date: 20120831
  Receipt Date: 20120831
  Transmission Date: 20130627
  Serious: Yes (Death)
  Sender: FDA-Public Use
  Company Number: PHHY2012HK075052

PATIENT
  Age: 19 Year
  Sex: Male

DRUGS (10)
  1. CICLOSPORIN [Suspect]
     Indication: PROPHYLAXIS AGAINST GRAFT VERSUS HOST DISEASE
  2. FLUDARABINE [Suspect]
     Indication: SURGICAL PRECONDITIONING
  3. MYCOPHENOLATE MOFETIL [Suspect]
     Indication: PROPHYLAXIS AGAINST GRAFT VERSUS HOST DISEASE
  4. INFLIXIMAB [Suspect]
     Indication: IMMUNOSUPPRESSANT DRUG THERAPY
  5. ANTITHYMOCYTE IMMUNOGLOBULIN (RABBIT) [Suspect]
     Indication: IMMUNOSUPPRESSANT DRUG THERAPY
  6. STEROIDS NOS [Suspect]
     Indication: IMMUNOSUPPRESSANT DRUG THERAPY
  7. BUSULFAN [Concomitant]
     Indication: SURGICAL PRECONDITIONING
  8. FLUCONAZOLE [Concomitant]
     Indication: ANTIFUNGAL PROPHYLAXIS
  9. ACICLOVIR [Concomitant]
  10. CO-TRIMOXAZOLE [Concomitant]

REACTIONS (19)
  - Acute graft versus host disease in intestine [Fatal]
  - Acute graft versus host disease in skin [Fatal]
  - Graft versus host disease in lung [Fatal]
  - Chronic graft versus host disease in skin [Fatal]
  - Chronic graft versus host disease in intestine [Fatal]
  - Bacillus infection [Fatal]
  - Viral infection [Fatal]
  - Norovirus test positive [Fatal]
  - Cachexia [Fatal]
  - Diarrhoea [Fatal]
  - Cytomegalovirus infection [Fatal]
  - Respiratory syncytial virus infection [Fatal]
  - Candidiasis [Fatal]
  - Clostridium difficile infection [Fatal]
  - Enterococcal infection [Fatal]
  - Enterobacter infection [Fatal]
  - Aspergillosis [Fatal]
  - Pseudomonas infection [Fatal]
  - Mycobacterium chelonae infection [Fatal]
